FAERS Safety Report 19484772 (Version 4)
Quarter: 2021Q3

REPORT INFORMATION
  Report Type: Report from Study
  Country: US (occurrence: US)
  Receive Date: 20210702
  Receipt Date: 20210929
  Transmission Date: 20211014
  Serious: Yes (Other)
  Sender: FDA-Public Use
  Company Number: NVSC2021US146297

PATIENT
  Sex: Female

DRUGS (1)
  1. TASIGNA [Suspect]
     Active Substance: NILOTINIB
     Indication: CHRONIC MYELOID LEUKAEMIA
     Dosage: UNK
     Route: 065

REACTIONS (3)
  - Chronic myeloid leukaemia recurrent [Unknown]
  - Blood cholesterol increased [Unknown]
  - Nausea [Recovering/Resolving]
